FAERS Safety Report 21551347 (Version 1)
Quarter: 2022Q4

REPORT INFORMATION
  Report Type: Report from Study
  Country: US (occurrence: US)
  Receive Date: 20221103
  Receipt Date: 20221103
  Transmission Date: 20230113
  Serious: No
  Sender: FDA-Public Use
  Company Number: US-ABBVIE-4137061

PATIENT
  Sex: Male

DRUGS (1)
  1. RINVOQ [Suspect]
     Active Substance: UPADACITINIB
     Indication: Dermatitis atopic
     Dosage: FORM STRENGTH: 15 MG; PRODUCT START DATE IN AUG 2022 AND ALL EVENT ONSET DATE WAS IN 2022.
     Route: 048

REACTIONS (4)
  - Erythema [Recovered/Resolved]
  - Erythema of eyelid [Recovered/Resolved]
  - Pruritus [Recovered/Resolved]
  - Eyelids pruritus [Recovered/Resolved]
